FAERS Safety Report 25691324 (Version 1)
Quarter: 2025Q3

REPORT INFORMATION
  Report Type: Spontaneous
  Country: US (occurrence: US)
  Receive Date: 20250818
  Receipt Date: 20250818
  Transmission Date: 20251020
  Serious: No
  Sender: ELI LILLY AND COMPANY
  Company Number: US-ELI_LILLY_AND_COMPANY-US202508005395

PATIENT
  Age: 47 Year
  Sex: Female

DRUGS (3)
  1. ZEPBOUND [Suspect]
     Active Substance: TIRZEPATIDE
     Indication: Weight control
     Route: 058
     Dates: start: 202506
  2. DIPHEN [DIPHENHYDRAMINE HYDROCHLORIDE] [Concomitant]
     Indication: Vomiting
  3. PHENERGAN [Concomitant]
     Active Substance: PROMETHAZINE HYDROCHLORIDE
     Indication: Vomiting

REACTIONS (10)
  - Extra dose administered [Unknown]
  - Dyspnoea [Not Recovered/Not Resolved]
  - Mobility decreased [Unknown]
  - Anxiety [Unknown]
  - Dehydration [Unknown]
  - Vomiting [Recovering/Resolving]
  - Diarrhoea [Unknown]
  - Fatigue [Unknown]
  - Dizziness [Unknown]
  - Asthenia [Unknown]
